FAERS Safety Report 7211712-9 (Version None)
Quarter: 2011Q1

REPORT INFORMATION
  Report Type: 
  Country: None (occurrence: None)
  Receive Date: 20110105
  Receipt Date: 20101227
  Transmission Date: 20110831
  Serious: Yes (Hospitalization)
  Sender: FDA-Public Use
  Company Number: FR-PFIZER INC-2010179423

PATIENT
  Age: 39 Year
  Sex: Female
  Weight: 125 kg

DRUGS (3)
  1. TAXOTERE [Suspect]
     Dosage: 130 MG
     Route: 041
     Dates: start: 20101103, end: 20101103
  2. MEDROL [Suspect]
     Indication: PREMEDICATION
     Dosage: 50 MG, 2X/DAY
     Route: 048
     Dates: start: 20101102, end: 20101104
  3. CISPLATIN [Suspect]
     Dosage: 130 MG
     Route: 041
     Dates: start: 20101103, end: 20101103

REACTIONS (2)
  - GENERALISED ERYTHEMA [None]
  - DYSPNOEA [None]
